FAERS Safety Report 9757211 (Version 1)
Quarter: 2013Q4

REPORT INFORMATION
  Report Type: Spontaneous
  Country: GB (occurrence: GB)
  Receive Date: 20131213
  Receipt Date: 20131213
  Transmission Date: 20140711
  Serious: Yes (Life-Threatening, Hospitalization)
  Sender: FDA-Public Use
  Company Number: GB-ASTRAZENECA-2013SE90727

PATIENT
  Age: 77 Year
  Sex: Female
  Weight: 89 kg

DRUGS (13)
  1. TICAGRELOR [Suspect]
     Indication: ACUTE MYOCARDIAL INFARCTION
     Route: 048
     Dates: start: 20131030, end: 20131125
  2. ASPIRIN [Concomitant]
  3. ATORVASTATIN [Concomitant]
  4. FERROUS FUMARATE [Concomitant]
     Dates: start: 20131030
  5. GTN [Concomitant]
  6. IVABRADINE [Concomitant]
     Dates: start: 20131030
  7. LACTULOSE [Concomitant]
  8. LANSOPRAZOLE [Concomitant]
     Dates: start: 20131030
  9. MOMETASONE [Concomitant]
  10. RAMIPRIL [Concomitant]
     Dates: start: 20131030
  11. SALBUTAMOL [Concomitant]
  12. SENNA [Concomitant]
     Dates: start: 20131030
  13. SERETIDE [Concomitant]

REACTIONS (1)
  - Neutropenia [Not Recovered/Not Resolved]
